FAERS Safety Report 5823159-8 (Version None)
Quarter: 2008Q3

REPORT INFORMATION
  Report Type: 
  Country: None (occurrence: None)
  Receive Date: 20080725
  Receipt Date: 20080717
  Transmission Date: 20090109
  Serious: Yes (Other)
  Sender: FDA-Public Use
  Company Number: PHEH2007US14982

PATIENT
  Sex: Female
  Weight: 74.83 kg

DRUGS (2)
  1. ZOMETA [Suspect]
     Indication: BREAST CANCER
     Dosage: 4 MG Q MONTH
     Route: 042
     Dates: start: 20030101, end: 20080701
  2. ^XEMPRA^ [Concomitant]

REACTIONS (4)
  - BONE DISORDER [None]
  - ORAL SURGERY [None]
  - OSTEONECROSIS [None]
  - PAIN [None]
